FAERS Safety Report 24777949 (Version 2)
Quarter: 2025Q3

REPORT INFORMATION
  Report Type: Spontaneous
  Country: US (occurrence: US)
  Receive Date: 20241226
  Receipt Date: 20250803
  Transmission Date: 20251021
  Serious: Yes (Other)
  Sender: ALEXION PHARMACEUTICALS
  Company Number: US-AstraZeneca-CH-00771009A

PATIENT
  Sex: Female

DRUGS (2)
  1. FASLODEX [Suspect]
     Active Substance: FULVESTRANT
     Route: 065
  2. FASLODEX [Suspect]
     Active Substance: FULVESTRANT

REACTIONS (9)
  - Breast cancer stage IV [Unknown]
  - Injection site pain [Unknown]
  - Sciatic nerve injury [Unknown]
  - Gait disturbance [Unknown]
  - Fatigue [Unknown]
  - Wrong technique in product usage process [Unknown]
  - Lymphoedema [Unknown]
  - Localised oedema [Unknown]
  - Pain [Unknown]
